FAERS Safety Report 10170176 (Version 1)
Quarter: 2014Q2

REPORT INFORMATION
  Report Type: Spontaneous
  Country: GB (occurrence: GB)
  Receive Date: 20140513
  Receipt Date: 20140513
  Transmission Date: 20141212
  Serious: Yes (Hospitalization)
  Sender: FDA-Public Use
  Company Number: GB-ACORDA-ACO_103441_2014

PATIENT
  Age: 65 Year
  Sex: Male

DRUGS (1)
  1. FAMPYRA [Suspect]
     Indication: PRODUCT USED FOR UNKNOWN INDICATION
     Dosage: UNK
     Route: 065

REACTIONS (2)
  - Hip fracture [Unknown]
  - Fall [Recovered/Resolved]
